FAERS Safety Report 9166990 (Version 3)
Quarter: 2013Q2

REPORT INFORMATION
  Report Type: Spontaneous
  Country: IT (occurrence: IT)
  Receive Date: 20130317
  Receipt Date: 20130412
  Transmission Date: 20140414
  Serious: Yes (Hospitalization)
  Sender: FDA-Public Use
  Company Number: IT-TEVA-391590ISR

PATIENT
  Age: 58 Year
  Sex: Female

DRUGS (4)
  1. CISPLATINO TEVA [Suspect]
     Indication: LUNG ADENOCARCINOMA
     Dosage: 105 MG CYCLICAL
     Route: 042
     Dates: start: 20130121, end: 20130121
  2. ALIMTA [Suspect]
     Indication: LUNG ADENOCARCINOMA
     Dosage: 875 MG CYCLICAL
     Route: 042
     Dates: start: 20130121, end: 20130121
  3. DOBETIN [Suspect]
     Indication: PREMEDICATION
     Dosage: 1 GRAM WEEKLY
     Route: 030
     Dates: start: 20121217, end: 20130121
  4. FOLINGRAV [Concomitant]
     Dosage: 400 MICROGRAM DAILY;

REACTIONS (3)
  - Oedema [Recovered/Resolved]
  - Pruritus [Recovered/Resolved]
  - Urticaria [Recovered/Resolved]
